FAERS Safety Report 5734200-5 (Version None)
Quarter: 2008Q2

REPORT INFORMATION
  Report Type: 
  Country: None (occurrence: None)
  Receive Date: 20080510
  Receipt Date: 20080508
  Transmission Date: 20081010
  Serious: Yes (Hospitalization)
  Sender: FDA-Public Use
  Company Number: PHHO2007US10006

PATIENT
  Sex: Male
  Weight: 113.6 kg

DRUGS (1)
  1. GLEEVEC [Suspect]
     Indication: GASTROINTESTINAL STROMAL TUMOUR
     Dosage: 400 MG, QD
     Route: 048
     Dates: start: 20060817, end: 20070627

REACTIONS (15)
  - ABDOMINAL PAIN UPPER [None]
  - BILE DUCT STONE [None]
  - BILIARY DRAINAGE [None]
  - BILIARY SEPSIS [None]
  - BLOOD ALBUMIN DECREASED [None]
  - CHOLECYSTITIS INFECTIVE [None]
  - DEHYDRATION [None]
  - GALLBLADDER OBSTRUCTION [None]
  - GALLBLADDER OPERATION [None]
  - HEPATIC ENZYME INCREASED [None]
  - HYPERBILIRUBINAEMIA [None]
  - NAUSEA [None]
  - NEUTROPHIL COUNT DECREASED [None]
  - PYREXIA [None]
  - VOMITING [None]
